FAERS Safety Report 14537416 (Version 6)
Quarter: 2019Q4

REPORT INFORMATION
  Report Type: Report from Study
  Country: US (occurrence: US)
  Receive Date: 20180215
  Receipt Date: 20191210
  Transmission Date: 20200122
  Serious: Yes (Hospitalization, Other)
  Sender: FDA-Public Use
  Company Number: US-ACTELION-A-US2017-164201

PATIENT
  Age: 79 Year
  Sex: Female

DRUGS (17)
  1. ATORVASTATIN [Concomitant]
     Active Substance: ATORVASTATIN
     Dosage: UNK, QD
  2. FERROUS SULFATE. [Concomitant]
     Active Substance: FERROUS SULFATE
  3. METFORMIN [Concomitant]
     Active Substance: METFORMIN HYDROCHLORIDE
     Dosage: 500 MG, QD
  4. ATROVENT [Concomitant]
     Active Substance: IPRATROPIUM BROMIDE
  5. OMEPRAZOLE. [Concomitant]
     Active Substance: OMEPRAZOLE
  6. IPRATROPIUM [Concomitant]
     Active Substance: IPRATROPIUM
  7. SPIRIVA [Concomitant]
     Active Substance: TIOTROPIUM BROMIDE MONOHYDRATE
  8. OPSUMIT [Suspect]
     Active Substance: MACITENTAN
     Indication: PULMONARY ARTERIAL HYPERTENSION
     Dosage: 10 MG, QD
     Route: 048
     Dates: start: 20171103
  9. SILDENAFIL. [Concomitant]
     Active Substance: SILDENAFIL
     Dosage: 80 MG, TID
  10. ADVAIR HFA [Concomitant]
     Active Substance: FLUTICASONE PROPIONATE\SALMETEROL XINAFOATE
  11. ALBUTEROL HFA [Concomitant]
     Active Substance: ALBUTEROL SULFATE
  12. LACTULOSE. [Concomitant]
     Active Substance: LACTULOSE
  13. WARFARIN [Suspect]
     Active Substance: WARFARIN
     Indication: PRODUCT USED FOR UNKNOWN INDICATION
     Dosage: 5 MG, QD
     Route: 065
  14. SUCRALFATE. [Concomitant]
     Active Substance: SUCRALFATE
  15. K-TAB [Concomitant]
     Active Substance: POTASSIUM CHLORIDE
     Dosage: 10 MG, QD
  16. PREDNISONE. [Concomitant]
     Active Substance: PREDNISONE
  17. OXYGEN. [Concomitant]
     Active Substance: OXYGEN
     Dosage: 2.5 L/MIN

REACTIONS (20)
  - Cardiac failure congestive [Recovering/Resolving]
  - Pulmonary oedema [Recovering/Resolving]
  - Anaemia [Unknown]
  - Hypoaesthesia [Recovering/Resolving]
  - Bursitis [Unknown]
  - Swelling [Unknown]
  - Carotid artery stenosis [Unknown]
  - Oedema peripheral [Not Recovered/Not Resolved]
  - Lung infiltration [Recovering/Resolving]
  - Chronic obstructive pulmonary disease [Recovering/Resolving]
  - Wheezing [Recovering/Resolving]
  - Transfusion [Unknown]
  - Upper respiratory tract infection [Recovering/Resolving]
  - Erythema [Unknown]
  - Respiratory failure [Recovering/Resolving]
  - Concomitant disease aggravated [Recovering/Resolving]
  - Arthralgia [Unknown]
  - Dyspnoea [Recovering/Resolving]
  - Asthma [Unknown]
  - Carotid endarterectomy [Unknown]

NARRATIVE: CASE EVENT DATE: 201711
